FAERS Safety Report 8585974-X (Version None)
Quarter: 2012Q3

REPORT INFORMATION
  Report Type: 
  Country: None (occurrence: None)
  Receive Date: 20120810
  Receipt Date: 20120807
  Transmission Date: 20120928
  Serious: Yes (Death, Hospitalization, Other)
  Sender: FDA-Public Use
  Company Number: US-ACTELION-A-NJ2012-64039

PATIENT
  Age: 85 Year
  Sex: Female

DRUGS (5)
  1. TRACLEER [Suspect]
     Indication: PULMONARY ARTERIAL HYPERTENSION
     Dosage: 125 MG, BID
     Route: 048
     Dates: start: 20090625, end: 20120701
  2. OXYGEN [Concomitant]
  3. TRACLEER [Suspect]
     Dosage: 62.5 MG, BID
     Route: 048
     Dates: start: 20090527, end: 20090624
  4. REVATIO [Concomitant]
  5. ASPIRIN [Concomitant]

REACTIONS (9)
  - GASTROINTESTINAL HAEMORRHAGE [None]
  - DEATH [None]
  - BLOOD UREA INCREASED [None]
  - BLOOD CREATININE INCREASED [None]
  - BLOOD IRON DECREASED [None]
  - FAECES DISCOLOURED [None]
  - ANAEMIA [None]
  - BIOPSY BONE MARROW [None]
  - RENAL IMPAIRMENT [None]
